FAERS Safety Report 4748080-8 (Version None)
Quarter: 2005Q3

REPORT INFORMATION
  Report Type: 
  Country: None (occurrence: None)
  Receive Date: 20050818
  Receipt Date: 20050812
  Transmission Date: 20060218
  Serious: Yes (Death, Hospitalization)
  Sender: FDA-Public Use
  Company Number: FR-GLAXOSMITHKLINE-B0390848A

PATIENT
  Age: 83 Year
  Sex: Female
  Weight: 67 kg

DRUGS (6)
  1. AUGMENTIN '125' [Suspect]
     Indication: LUNG DISORDER
     Dosage: 1G THREE TIMES PER DAY
     Route: 048
     Dates: start: 20050208, end: 20050217
  2. TAREG [Suspect]
     Indication: HYPERTENSION
     Dosage: 1UNIT PER DAY
     Route: 048
     Dates: end: 20050207
  3. MONICOR LP [Suspect]
     Indication: MYOCARDIAL ISCHAEMIA
     Dosage: 1CAP PER DAY
     Route: 048
  4. SPASFON LYOC [Suspect]
     Dosage: 2UNIT THREE TIMES PER DAY
     Route: 048
     Dates: start: 20050211, end: 20050214
  5. COZAAR [Suspect]
     Indication: HYPERTENSION
     Dosage: 1TAB PER DAY
     Route: 048
     Dates: start: 20050209, end: 20050210
  6. PREVISCAN 20 [Suspect]
     Indication: MYOCARDIAL ISCHAEMIA
     Dosage: .5TAB PER DAY
     Route: 048
     Dates: end: 20050211

REACTIONS (5)
  - CARDIAC ARREST [None]
  - INTERNATIONAL NORMALISED RATIO INCREASED [None]
  - LUNG DISORDER [None]
  - MUSCLE HAEMORRHAGE [None]
  - PLATELET COUNT DECREASED [None]
